FAERS Safety Report 14364553 (Version 1)
Quarter: 2018Q1

REPORT INFORMATION
  Report Type: Spontaneous
  Country: US (occurrence: US)
  Receive Date: 20180107
  Receipt Date: 20180107
  Transmission Date: 20180509
  Serious: No
  Sender: FDA-Public Use
  Company Number: None

PATIENT
  Age: 32 Year
  Sex: Female
  Weight: 63.5 kg

DRUGS (2)
  1. WOMEN^S MULTIVITAMIN [Concomitant]
  2. MIRENA [Suspect]
     Active Substance: LEVONORGESTREL

REACTIONS (6)
  - Abdominal pain [None]
  - Abdominal discomfort [None]
  - Nausea [None]
  - Abdominal distension [None]
  - Acne [None]
  - Pelvic pain [None]

NARRATIVE: CASE EVENT DATE: 20170901
